FAERS Safety Report 4384203-0 (Version None)
Quarter: 2004Q2

REPORT INFORMATION
  Report Type: 
  Country: None (occurrence: None)
  Receive Date: 20040604
  Receipt Date: 20040524
  Transmission Date: 20050107
  Serious: Yes (Other)
  Sender: FDA-Public Use
  Company Number: 200410235BYL

PATIENT
  Age: 16 Month
  Sex: Male
  Weight: 10.3 kg

DRUGS (1)
  1. GAMIMUNE N 5% [Suspect]
     Indication: KAWASAKI'S DISEASE
     Dosage: 210 MG, TOTAL DAILY; 360 MG, TOTAL DAILY
     Dates: start: 20040301

REACTIONS (2)
  - DIZZINESS [None]
  - SHOCK [None]
